FAERS Safety Report 13303988 (Version 1)
Quarter: 2017Q1

REPORT INFORMATION
  Report Type: Spontaneous
  Country: US (occurrence: US)
  Receive Date: 20170307
  Receipt Date: 20170307
  Transmission Date: 20170428
  Serious: Yes (Hospitalization, Other)
  Sender: FDA-Public Use
  Company Number: US-ELI_LILLY_AND_COMPANY-US201608001526

PATIENT
  Sex: Female
  Weight: 97.51 kg

DRUGS (6)
  1. NEXIUM [Concomitant]
     Active Substance: ESOMEPRAZOLE MAGNESIUM
     Dosage: 40 MG, QD
     Route: 048
  2. LISINOPRIL AND HYDROCHLOROTHIAZIDE [Concomitant]
     Active Substance: HYDROCHLOROTHIAZIDE\LISINOPRIL
     Dosage: UNK, BID
     Route: 048
  3. SYMBICORT [Concomitant]
     Active Substance: BUDESONIDE\FORMOTEROL FUMARATE DIHYDRATE
     Route: 055
  4. CYMBALTA [Suspect]
     Active Substance: DULOXETINE HYDROCHLORIDE
     Indication: SCHIZOAFFECTIVE DISORDER
     Dosage: 60 MG, QD
     Route: 048
  5. RISPERDAL [Concomitant]
     Active Substance: RISPERIDONE
     Dosage: 5 MG, QD
     Route: 048
  6. CYMBALTA [Suspect]
     Active Substance: DULOXETINE HYDROCHLORIDE
     Indication: ANXIETY DISORDER
     Dosage: 40 MG, UNKNOWN
     Route: 048

REACTIONS (31)
  - Suicide attempt [Unknown]
  - Vertigo [Unknown]
  - Pain [Unknown]
  - Paraesthesia [Unknown]
  - Tinnitus [Unknown]
  - Dry eye [Unknown]
  - Vision blurred [Unknown]
  - Dysphoria [Unknown]
  - Rash [Unknown]
  - Nausea [Unknown]
  - Suicidal ideation [Unknown]
  - Nightmare [Unknown]
  - Agitation [Unknown]
  - Confusional state [Unknown]
  - Tremor [Unknown]
  - Drug withdrawal syndrome [Unknown]
  - Anxiety [Unknown]
  - Eye pain [Unknown]
  - Vomiting [Unknown]
  - Diarrhoea [Unknown]
  - Irritability [Unknown]
  - Hypomania [Unknown]
  - Fatigue [Unknown]
  - Dizziness [Unknown]
  - Headache [Unknown]
  - Lethargy [Unknown]
  - Insomnia [Unknown]
  - Syncope [Unknown]
  - Visual impairment [Unknown]
  - Sensory disturbance [Unknown]
  - Affect lability [Unknown]
